FAERS Safety Report 9287772 (Version 1)
Quarter: 2013Q2

REPORT INFORMATION
  Report Type: Spontaneous
  Country: US (occurrence: US)
  Receive Date: 20130514
  Receipt Date: 20130514
  Transmission Date: 20140414
  Serious: Yes (Other)
  Sender: FDA-Public Use
  Company Number: US-PFIZER INC-2013148441

PATIENT
  Age: 41 Year
  Sex: Male
  Weight: 147 kg

DRUGS (2)
  1. GABAPENTIN [Suspect]
     Indication: COMPARTMENT SYNDROME
     Dosage: UNK
  2. GABAPENTIN [Suspect]
     Indication: NEUROPATHY PERIPHERAL

REACTIONS (3)
  - Diabetes mellitus [Unknown]
  - Off label use [Unknown]
  - Drug ineffective for unapproved indication [Unknown]
